FAERS Safety Report 8129563-X (Version None)
Quarter: 2012Q1

REPORT INFORMATION
  Report Type: 
  Country: None (occurrence: None)
  Receive Date: 20120103
  Receipt Date: 20111107
  Transmission Date: 20120608
  Serious: No
  Sender: FDA-Public Use
  Company Number: AE-2011-003188

PATIENT
  Age: 67 Year
  Sex: Female
  Weight: 55.7924 kg

DRUGS (5)
  1. ALEVE [Concomitant]
  2. PEGASYS [Concomitant]
  3. INCIVEK [Suspect]
     Dosage: (750 MG, EVERY 7-9 HOURS), ORAL
     Route: 048
     Dates: start: 20111106
  4. PHENERGAN HCL [Concomitant]
  5. RIBAVIRIN [Concomitant]

REACTIONS (7)
  - RECTAL HAEMORRHAGE [None]
  - DRUG DOSE OMISSION [None]
  - ASTHENIA [None]
  - VOMITING [None]
  - HEADACHE [None]
  - NAUSEA [None]
  - ANORECTAL DISCOMFORT [None]
